FAERS Safety Report 4589640-7 (Version None)
Quarter: 2005Q1

REPORT INFORMATION
  Report Type: 
  Country: None (occurrence: None)
  Receive Date: 20050223
  Receipt Date: 20050127
  Transmission Date: 20050727
  Serious: Yes (Death, Hospitalization)
  Sender: FDA-Public Use
  Company Number: DE-MERCK-0501DEU00270

PATIENT
  Age: 57 Year
  Sex: Male

DRUGS (13)
  1. VIOXX [Suspect]
     Indication: CANCER PAIN
     Route: 048
     Dates: start: 20031201, end: 20040301
  2. MORPHINE [Concomitant]
     Indication: ANALGESIC THERAPY
     Route: 065
     Dates: start: 20030101
  3. RAMIPRIL [Concomitant]
     Route: 065
  4. ASPIRIN [Concomitant]
     Route: 065
  5. GABAPENTIN [Concomitant]
     Route: 065
  6. ALLOPURINOL [Concomitant]
     Route: 065
  7. METOPROLOL [Concomitant]
     Route: 065
  8. AMITRIPTYLINE HYDROCHLORIDE [Concomitant]
     Route: 065
  9. FUROSEMIDE AND SPIRONOLACTONE [Concomitant]
     Route: 065
  10. OMEPRAZOLE [Concomitant]
     Route: 065
  11. DIPYRONE [Concomitant]
     Route: 065
  12. FOSAMAX [Concomitant]
     Route: 065
  13. BUPRENORPHINE HYDROCHLORIDE [Concomitant]
     Route: 061

REACTIONS (5)
  - DEATH [None]
  - DELUSION [None]
  - FEELING ABNORMAL [None]
  - LOSS OF CONSCIOUSNESS [None]
  - PLEURAL EFFUSION [None]
